FAERS Safety Report 12782918 (Version 1)
Quarter: 2016Q3

REPORT INFORMATION
  Report Type: Spontaneous
  Country: US (occurrence: US)
  Receive Date: 20160926
  Receipt Date: 20160926
  Transmission Date: 20161109
  Serious: Yes (Life-Threatening, Hospitalization)
  Sender: FDA-Public Use
  Company Number: None

PATIENT
  Age: 50 Year
  Sex: Female
  Weight: 67 kg

DRUGS (16)
  1. CASFUNG GLENMARK [Suspect]
     Active Substance: CASPOFUNGIN ACETATE
     Indication: PNEUMONIA
     Dosage: 3MG/M2 MILLIGRAM(S)/SQ.METER DAILY INTRAVENOUS (NOT OTHERWISE SPECIFIED)
     Route: 042
     Dates: start: 20160916, end: 20160926
  2. FABUTAZ CASPOFUNGI [Concomitant]
  3. TARGOCID [Concomitant]
     Active Substance: TEICOPLANIN
  4. LASIX [Concomitant]
     Active Substance: FUROSEMIDE
  5. HUMAN ANTRACID [Concomitant]
  6. PANTOCID [Concomitant]
  7. LANTUS [Concomitant]
     Active Substance: INSULIN GLARGINE
  8. DIBANA MUCOMIX [Concomitant]
  9. ENTECAVIR. [Concomitant]
     Active Substance: ENTECAVIR
  10. MEROPENEM. [Concomitant]
     Active Substance: MEROPENEM
  11. C ATRA [Concomitant]
  12. DUPHALAC [Concomitant]
     Active Substance: LACTULOSE
  13. AZTOR [Concomitant]
  14. BUDECORT [Concomitant]
     Active Substance: BUDESONIDE
  15. HYDREA [Concomitant]
     Active Substance: HYDROXYUREA
  16. NICORAM [Concomitant]

REACTIONS (7)
  - General physical health deterioration [None]
  - Product colour issue [None]
  - Haemoptysis [None]
  - Product packaging issue [None]
  - Dyspnoea [None]
  - Chest pain [None]
  - Drug ineffective [None]

NARRATIVE: CASE EVENT DATE: 20160925
